FAERS Safety Report 19760331 (Version 1)
Quarter: 2021Q3

REPORT INFORMATION
  Report Type: Spontaneous
  Country: US (occurrence: US)
  Receive Date: 20210830
  Receipt Date: 20210830
  Transmission Date: 20211014
  Serious: No
  Sender: FDA-Public Use
  Company Number: US-TEVA-2021-US-1945513

PATIENT
  Age: 44 Year
  Sex: Female
  Weight: 77.11 kg

DRUGS (6)
  1. AJOVY [Suspect]
     Active Substance: FREMANEZUMAB-VFRM
     Indication: MIGRAINE
     Route: 065
     Dates: start: 20210706
  2. HYDROCHLOROTHIAZIDE. [Concomitant]
     Active Substance: HYDROCHLOROTHIAZIDE
     Indication: HYPERTENSION
  3. AJOVY [Suspect]
     Active Substance: FREMANEZUMAB-VFRM
  4. TIZANIDINE. [Concomitant]
     Active Substance: TIZANIDINE
  5. DULOXETINE. [Concomitant]
     Active Substance: DULOXETINE
  6. GABAPENTIN. [Concomitant]
     Active Substance: GABAPENTIN
     Dosage: AT BED TIME
     Route: 065

REACTIONS (1)
  - Migraine [Unknown]
